FAERS Safety Report 9857968 (Version 1)
Quarter: 2014Q1

REPORT INFORMATION
  Report Type: Spontaneous
  Country: US (occurrence: US)
  Receive Date: 20140131
  Receipt Date: 20140131
  Transmission Date: 20141002
  Serious: No
  Sender: FDA-Public Use
  Company Number: US-PFIZER INC-2014027232

PATIENT
  Age: 80 Year
  Sex: Female
  Weight: 99.77 kg

DRUGS (5)
  1. CELEBREX [Suspect]
     Indication: SPINAL PAIN
     Dosage: 200 MG, DAILY
     Dates: start: 201401, end: 20140123
  2. CELEBREX [Interacting]
     Indication: SPONDYLITIS
  3. COUMADIN [Interacting]
     Dosage: UNK
  4. PRILOSEC [Concomitant]
     Indication: GASTROOESOPHAGEAL REFLUX DISEASE
     Dosage: UNK
  5. METOPROLOL [Concomitant]
     Dosage: UNK

REACTIONS (3)
  - Labelled drug-drug interaction medication error [Unknown]
  - International normalised ratio increased [Unknown]
  - Blood disorder [Unknown]
